FAERS Safety Report 17038853 (Version 1)
Quarter: 2019Q4

REPORT INFORMATION
  Report Type: Spontaneous
  Country: DE (occurrence: DE)
  Receive Date: 20191115
  Receipt Date: 20191115
  Transmission Date: 20200122
  Serious: Yes (Hospitalization)
  Sender: FDA-Public Use
  Company Number: DE-MYLANLABS-2019M1109535

PATIENT
  Age: 85 Year
  Sex: Female
  Weight: 62 kg

DRUGS (11)
  1. ACICUTAN [Suspect]
     Active Substance: ACITRETIN
     Indication: PSORIASIS
     Dosage: UNK
     Route: 048
     Dates: start: 20160905, end: 20170728
  2. SALBUTAMOL [Concomitant]
     Active Substance: ALBUTEROL
     Dosage: UNK, 0.1 DOSAGE AEROSOL
  3. LERCANIDIPINE [Concomitant]
     Active Substance: LERCANIDIPINE
     Dosage: UNK
  4. TORASEMID [Concomitant]
     Active Substance: TORSEMIDE
     Dosage: UNK
  5. RIVAROXABAN [Concomitant]
     Active Substance: RIVAROXABAN
     Dosage: UNK
  6. METHOTREXATE. [Suspect]
     Active Substance: METHOTREXATE
     Indication: PSORIASIS
     Dosage: 1 DOSAGE FORM, QW
     Route: 058
     Dates: start: 20160222, end: 20160420
  7. VALSARTAN. [Concomitant]
     Active Substance: VALSARTAN
     Dosage: UNK
  8. METFORMIN HYDROCHLORIDE. [Concomitant]
     Active Substance: METFORMIN HYDROCHLORIDE
     Dosage: UNK
  9. PREDNISOLON                        /00016201/ [Concomitant]
     Active Substance: PREDNISOLONE
     Dosage: UNK
  10. FOLIC ACID. [Concomitant]
     Active Substance: FOLIC ACID
  11. HYDROCHLOROTHIAZID [Concomitant]
     Active Substance: HYDROCHLOROTHIAZIDE
     Dosage: UNK

REACTIONS (2)
  - Wound infection staphylococcal [Recovering/Resolving]
  - Bowen^s disease [Recovering/Resolving]

NARRATIVE: CASE EVENT DATE: 20190416
